FAERS Safety Report 9348595 (Version 2)
Quarter: 2013Q4

REPORT INFORMATION
  Report Type: Spontaneous
  Country: US (occurrence: US)
  Receive Date: 20130614
  Receipt Date: 20131028
  Transmission Date: 20140711
  Serious: Yes (Hospitalization, Disabling, Other)
  Sender: FDA-Public Use
  Company Number: US-BAYER-2013-070535

PATIENT
  Age: 22 Year
  Sex: Female
  Weight: 50.79 kg

DRUGS (1)
  1. MIRENA [Suspect]
     Indication: CONTRACEPTION
     Dosage: 20 MCG/24HR, CONT
     Route: 015
     Dates: start: 20100715, end: 20130706

REACTIONS (16)
  - Embedded device [None]
  - Genital haemorrhage [None]
  - Injury [None]
  - Pain [None]
  - General physical health deterioration [None]
  - Anxiety [None]
  - Emotional distress [None]
  - Anhedonia [None]
  - Fear of death [None]
  - Internal injury [None]
  - Abdominal pain [None]
  - Deformity [None]
  - Dysuria [None]
  - Depression [None]
  - Dyspareunia [None]
  - Penile pain [None]
